FAERS Safety Report 12170253 (Version 2)
Quarter: 2016Q2

REPORT INFORMATION
  Report Type: Spontaneous
  Country: US (occurrence: US)
  Receive Date: 20160311
  Receipt Date: 20160415
  Transmission Date: 20160815
  Serious: Yes (Other)
  Sender: FDA-Public Use
  Company Number: US-009507513-1603USA005346

PATIENT
  Age: 10 Year
  Sex: Male
  Weight: 36.64 kg

DRUGS (2)
  1. GRASTEK [Suspect]
     Active Substance: PHLEUM PRATENSE POLLEN
     Indication: SEASONAL ALLERGY
     Dosage: 1 TABLET DAILY; CONCENTRATION 2800 BIOEQUIVALENT ALLERGY UNITS (BAU)
     Route: 048
     Dates: start: 20160216, end: 20160219
  2. FLONASE [Concomitant]
     Active Substance: FLUTICASONE PROPIONATE
     Indication: HYPERSENSITIVITY
     Dosage: 1 SPRAY
     Route: 045

REACTIONS (5)
  - Swelling face [Recovered/Resolved]
  - Tinnitus [Recovered/Resolved]
  - Mouth swelling [Recovered/Resolved]
  - Ear pruritus [Recovering/Resolving]
  - Throat irritation [Recovered/Resolved]

NARRATIVE: CASE EVENT DATE: 2016
